FAERS Safety Report 23692200 (Version 3)
Quarter: 2024Q2

REPORT INFORMATION
  Report Type: Report from Study
  Country: US (occurrence: US)
  Receive Date: 20240401
  Receipt Date: 20240621
  Transmission Date: 20240715
  Serious: Yes (Other)
  Sender: FDA-Public Use
  Company Number: US-TEVA-VS-3166753

PATIENT
  Age: 20 Year
  Sex: Female

DRUGS (1)
  1. CLARAVIS [Suspect]
     Active Substance: ISOTRETINOIN
     Indication: Product used for unknown indication
     Dosage: STRENGTH; 30 MG + 20 MG
     Route: 065
     Dates: start: 20231202, end: 20240223

REACTIONS (5)
  - Unintended pregnancy [Unknown]
  - Xerosis [Unknown]
  - Cheilitis [Unknown]
  - Epistaxis [Unknown]
  - Hypercholesterolaemia [Unknown]

NARRATIVE: CASE EVENT DATE: 20231201
